FAERS Safety Report 9899854 (Version 3)
Quarter: 2015Q2

REPORT INFORMATION
  Report Type: Spontaneous
  Country: SE (occurrence: SE)
  Receive Date: 20140214
  Receipt Date: 20150626
  Transmission Date: 20150821
  Serious: Yes (Hospitalization, Other)
  Sender: FDA-Public Use
  Company Number: SE-UCBSA-111926

PATIENT
  Age: 36 Year
  Sex: Female

DRUGS (13)
  1. ERGENYL RETARD [Suspect]
     Active Substance: VALPROIC ACID
     Dosage: 14 PC OF 300 MG DEPOT TABLETS (TOTAL AMOUNT 4200 MG)
     Dates: start: 20131202, end: 20131202
  2. VENLAFAXINE [Suspect]
     Active Substance: VENLAFAXINE HYDROCHLORIDE
     Indication: EPILEPSY
     Dosage: DOSE: ONE 75 MG CAPSULE AND ONE 37.5 MG CAPSULE IN THE MORNING
  3. CITODON [Concomitant]
     Active Substance: ACETAMINOPHEN\CODEINE PHOSPHATE
     Indication: PRODUCT USED FOR UNKNOWN INDICATION
     Dosage: 500 MG/30 MG TABLET
  4. BEHEPAN [Concomitant]
     Active Substance: HYDROXOCOBALAMIN
     Indication: PRODUCT USED FOR UNKNOWN INDICATION
  5. KEPPRA [Suspect]
     Active Substance: LEVETIRACETAM
     Indication: PRODUCT USED FOR UNKNOWN INDICATION
     Dosage: 500 MG, 2X/DAY (BID) (1 TABLET OF 500 MG)
  6. ERGENYL RETARD [Suspect]
     Active Substance: VALPROIC ACID
     Indication: EPILEPSY
     Dosage: 600 MG, 2X/DAY (BID), STRENGTH: 300 MG
  7. LAMICTAL [Concomitant]
     Active Substance: LAMOTRIGINE
     Indication: PRODUCT USED FOR UNKNOWN INDICATION
     Dosage: UNK
  8. STESOLID REKTAL [Concomitant]
     Indication: PRODUCT USED FOR UNKNOWN INDICATION
     Dosage: 5 MG/ML RECTAL SOLUTION
  9. ALVEDON [Concomitant]
     Active Substance: ACETAMINOPHEN
     Indication: PRODUCT USED FOR UNKNOWN INDICATION
  10. KEPPRA [Suspect]
     Active Substance: LEVETIRACETAM
     Dosage: 7 PC OF 500 MG TABLET (TOTAL AMOUNT: 3500 MG)
     Dates: start: 20131202, end: 20131202
  11. VENLAFAXINE [Suspect]
     Active Substance: VENLAFAXINE HYDROCHLORIDE
     Dosage: FOUR PIECES (PC) 37.5 MG (150 MG) AND FOUR PC 75 MG (300 MG) TOTAL AMOUNT : 450 MG
     Dates: start: 20131202, end: 20131202
  12. OMEPRAZOLE. [Concomitant]
     Active Substance: OMEPRAZOLE
     Indication: PRODUCT USED FOR UNKNOWN INDICATION
  13. DUROFERON [Concomitant]
     Active Substance: FERROUS SULFATE\FERROUS SULFATE, DRIED
     Indication: PRODUCT USED FOR UNKNOWN INDICATION
     Dosage: 100 MG FERROUS DEPOT TABLET

REACTIONS (4)
  - Seizure [Unknown]
  - Toxicity to various agents [Unknown]
  - Overdose [Unknown]
  - Suicide attempt [Unknown]

NARRATIVE: CASE EVENT DATE: 20131202
